FAERS Safety Report 15191959 (Version 2)
Quarter: 2018Q4

REPORT INFORMATION
  Report Type: Spontaneous
  Country: CN (occurrence: CN)
  Receive Date: 20180724
  Receipt Date: 20180730
  Transmission Date: 20190204
  Serious: Yes (Hospitalization)
  Sender: FDA-Public Use
  Company Number: CN-NOVOPROD-611248

PATIENT
  Age: 56 Year
  Sex: Male
  Weight: 64 kg

DRUGS (5)
  1. NOVOMIX 30 PENFILL [Suspect]
     Active Substance: INSULIN ASPART
     Dosage: 26 U BEFORE BREAKFAST AND DINNER
     Route: 058
     Dates: start: 20180425
  2. LIGUSTRAZINE HYDROCHLORIDE [Suspect]
     Active Substance: LIGUSTRAZINE HYDROCHLORIDE
     Indication: DIABETIC NEUROPATHY
     Dosage: 0.12 G, QD
     Route: 042
     Dates: start: 20180425, end: 20180426
  3. SODIUM CHLORIDE. [Concomitant]
     Active Substance: SODIUM CHLORIDE
     Indication: PRODUCT USED FOR UNKNOWN INDICATION
     Dosage: 100 ML
     Route: 042
     Dates: start: 20180425
  4. NOVOMIX 30 PENFILL [Suspect]
     Active Substance: INSULIN ASPART
     Dosage: 16 U BEFORE BREAKFAST AND DINNER
     Route: 058
     Dates: start: 20180427, end: 20180427
  5. NOVOMIX 30 PENFILL [Suspect]
     Active Substance: INSULIN ASPART
     Indication: TYPE 2 DIABETES MELLITUS
     Dosage: 30 U BEFORE BREAKFAST AND DINNER
     Route: 058
     Dates: start: 20180424

REACTIONS (13)
  - Ear pruritus [Recovering/Resolving]
  - Pruritus [Recovering/Resolving]
  - Ocular hyperaemia [Recovered/Resolved]
  - Swelling face [Recovered/Resolved]
  - Ear swelling [Recovered/Resolved]
  - Drug hypersensitivity [Recovering/Resolving]
  - Ear discomfort [Unknown]
  - Skin warm [Recovering/Resolving]
  - Erythema [Recovering/Resolving]
  - Flushing [Recovering/Resolving]
  - Erythema [Recovered/Resolved]
  - Skin swelling [Recovering/Resolving]
  - Eye swelling [Recovered/Resolved]

NARRATIVE: CASE EVENT DATE: 20180424
